FAERS Safety Report 5870590-0 (Version None)
Quarter: 2008Q3

REPORT INFORMATION
  Report Type: 
  Country: None (occurrence: None)
  Receive Date: 20080904
  Receipt Date: 20080829
  Transmission Date: 20090109
  Serious: Yes (Hospitalization)
  Sender: FDA-Public Use
  Company Number: A0745220A

PATIENT
  Age: 62 Year
  Sex: Male
  Weight: 109.1 kg

DRUGS (16)
  1. AVANDIA [Suspect]
     Indication: TYPE 2 DIABETES MELLITUS
     Dosage: 4MG PER DAY
     Route: 048
     Dates: start: 20040101, end: 20050101
  2. GLUCOPHAGE [Concomitant]
  3. COUMADIN [Concomitant]
  4. NITROSTAT [Concomitant]
  5. METOPROLOL TARTRATE [Concomitant]
  6. WARFARIN SODIUM [Concomitant]
  7. METFORMIN HCL [Concomitant]
  8. UNSPECIFIED MEDICATION [Concomitant]
  9. PRAVACHOL [Concomitant]
  10. BENAZEPRIL HYDROCHLORIDE [Concomitant]
  11. ACIPHEX [Concomitant]
  12. DIOVAN [Concomitant]
  13. LASIX [Concomitant]
  14. NORVASC [Concomitant]
  15. ZOCOR [Concomitant]
  16. LISINOPRIL [Concomitant]

REACTIONS (3)
  - CARDIAC FAILURE CONGESTIVE [None]
  - MYOCARDIAL INFARCTION [None]
  - MYOCARDIAL ISCHAEMIA [None]
